FAERS Safety Report 4773269-1 (Version None)
Quarter: 2005Q3

REPORT INFORMATION
  Report Type: 
  Country: None (occurrence: None)
  Receive Date: 20050916
  Receipt Date: 20050908
  Transmission Date: 20060218
  Serious: Yes (Other)
  Sender: FDA-Public Use
  Company Number: 200513619BCC

PATIENT
  Age: 43 Year
  Sex: Male
  Weight: 95.2554 kg

DRUGS (4)
  1. ALEVE (CAPLET) [Suspect]
     Indication: PAIN
     Dosage: 440-660 MG, IRR, ORAL
     Route: 048
     Dates: start: 19940101, end: 20050501
  2. ASPIRIN [Suspect]
     Dosage: 325- 650 MG, IRR, ORAL
     Route: 048
  3. WHITE CROSSES [Concomitant]
  4. CAFFEINE PILLS [Concomitant]

REACTIONS (4)
  - BLOOD CHOLESTEROL INCREASED [None]
  - DIABETES MELLITUS NON-INSULIN-DEPENDENT [None]
  - HYPERTENSION [None]
  - JAUNDICE [None]
